APPROVED DRUG PRODUCT: ONDANSETRON HYDROCHLORIDE PRESERVATIVE FREE
Active Ingredient: ONDANSETRON HYDROCHLORIDE
Strength: EQ 2MG BASE/ML
Dosage Form/Route: INJECTABLE;INJECTION
Application: A202253 | Product #001 | TE Code: AP
Applicant: FRESENIUS KABI USA LLC
Approved: Jul 19, 2013 | RLD: No | RS: No | Type: RX